FAERS Safety Report 7405697-X (Version None)
Quarter: 2011Q2

REPORT INFORMATION
  Report Type: 
  Country: None (occurrence: None)
  Receive Date: 20110411
  Receipt Date: 20110328
  Transmission Date: 20111010
  Serious: Yes (Death, Hospitalization)
  Sender: FDA-Public Use
  Company Number: FR-CELGENEUS-056-20785-10051189

PATIENT
  Sex: Male
  Weight: 84 kg

DRUGS (5)
  1. THALIDOMIDE [Suspect]
     Indication: MULTIPLE MYELOMA
     Dosage: 100 MILLIGRAM
     Route: 048
     Dates: start: 20091007
  2. THALIDOMIDE [Suspect]
     Dosage: 50 MILLIGRAM
     Route: 048
     Dates: start: 20100119, end: 20100319
  3. PREVISCAN [Concomitant]
     Route: 065
  4. CORDARONE [Concomitant]
     Route: 065
  5. LASIX [Concomitant]
     Route: 065

REACTIONS (5)
  - MALAISE [None]
  - ESCHERICHIA SEPSIS [None]
  - PNEUMONIA [None]
  - MULTIPLE MYELOMA [None]
  - RESPIRATORY FAILURE [None]
